FAERS Safety Report 23016344 (Version 2)
Quarter: 2023Q4

REPORT INFORMATION
  Report Type: Spontaneous
  Country: JP (occurrence: JP)
  Receive Date: 20231002
  Receipt Date: 20231030
  Transmission Date: 20240110
  Serious: Yes (Death, Other)
  Sender: FDA-Public Use
  Company Number: JP-BEH-2023163600

PATIENT
  Age: 67 Year
  Sex: Female
  Weight: 39 kg

DRUGS (6)
  1. KCENTRA [Suspect]
     Active Substance: COAGULATION FACTOR IX HUMAN\COAGULATION FACTOR VII HUMAN\COAGULATION FACTOR X HUMAN\PROTEIN C\PROTEI
     Indication: Procoagulant therapy
     Dosage: 2000 INTERNATIONAL UNIT
     Route: 065
  2. KCENTRA [Suspect]
     Active Substance: COAGULATION FACTOR IX HUMAN\COAGULATION FACTOR VII HUMAN\COAGULATION FACTOR X HUMAN\PROTEIN C\PROTEI
     Indication: Procoagulant therapy
     Dosage: 2000 INTERNATIONAL UNIT
     Route: 065
  3. WARFARIN [Suspect]
     Active Substance: WARFARIN
     Dosage: 2.75 MILLIGRAM
     Route: 048
  4. TRANEXAMIC ACID [Suspect]
     Active Substance: TRANEXAMIC ACID
     Dosage: 1 GRAM
     Route: 065
  5. PROTAMINE [Suspect]
     Active Substance: PROTAMINE
     Dosage: 150 MILLIGRAM
     Route: 065
  6. PROTAMINE [Suspect]
     Active Substance: PROTAMINE
     Dosage: 50 MILLIGRAM
     Route: 065

REACTIONS (5)
  - Atrial thrombosis [Recovered/Resolved]
  - Atrial thrombosis [Recovered/Resolved]
  - Thrombosis [Unknown]
  - Drug ineffective [Fatal]
  - Complication associated with device [Unknown]
